FAERS Safety Report 7893969-4 (Version None)
Quarter: 2011Q4

REPORT INFORMATION
  Report Type: 
  Country: None (occurrence: None)
  Receive Date: 20111104
  Receipt Date: 20111012
  Transmission Date: 20120403
  Serious: Yes (Hospitalization)
  Sender: FDA-Public Use
  Company Number: CA-JNJFOC-20111013216

PATIENT
  Sex: Female
  Weight: 75.1 kg

DRUGS (11)
  1. REMICADE [Suspect]
     Dosage: REACTED AFTER 2ND DOSE
     Route: 042
     Dates: start: 20030101
  2. DILAUDID [Concomitant]
  3. PREDNISONE [Concomitant]
  4. PREVACID [Concomitant]
  5. ATIVAN [Concomitant]
  6. HYDROMORPHONE CONTIN [Concomitant]
  7. MULTI-VITAMINS [Concomitant]
  8. REMICADE [Suspect]
     Indication: CROHN'S DISEASE
     Dosage: HAD ONE DOSE
     Route: 042
     Dates: start: 20110929
  9. PAXIL [Concomitant]
  10. PENTASA [Concomitant]
  11. SLOW-K [Concomitant]

REACTIONS (9)
  - BODY TEMPERATURE INCREASED [None]
  - DYSPNOEA [None]
  - DIARRHOEA [None]
  - URTICARIA [None]
  - HEART RATE INCREASED [None]
  - ADVERSE EVENT [None]
  - OEDEMA PERIPHERAL [None]
  - PRURITUS [None]
  - UNEVALUABLE EVENT [None]
